FAERS Safety Report 17041957 (Version 12)
Quarter: 2022Q1

REPORT INFORMATION
  Report Type: Report from Study
  Country: CN (occurrence: CN)
  Receive Date: 20191118
  Receipt Date: 20220301
  Transmission Date: 20220423
  Serious: Yes (Other)
  Sender: FDA-Public Use
  Company Number: NVSC2019CN017077

PATIENT
  Age: 73 Year
  Sex: Female

DRUGS (28)
  1. ENTRESTO [Suspect]
     Active Substance: SACUBITRIL\VALSARTAN
     Indication: Cardiac failure chronic
     Dosage: 50 MG
     Route: 048
     Dates: start: 20190724, end: 20190728
  2. ENTRESTO [Suspect]
     Active Substance: SACUBITRIL\VALSARTAN
     Dosage: 100 MG
     Route: 048
     Dates: start: 20190729, end: 20191129
  3. COMPOUND AMINO ACID (9AA) [Concomitant]
     Indication: Supplementation therapy
     Dosage: 500 ML
     Route: 042
     Dates: start: 20190911, end: 20190911
  4. COMPOUND AMINO ACID (9AA) [Concomitant]
     Dosage: 1 G
     Route: 042
     Dates: start: 20190910, end: 20191010
  5. MORPHINE HYDROCHLORIDE [Concomitant]
     Active Substance: MORPHINE HYDROCHLORIDE
     Indication: Cardiac failure
     Dosage: 10 MG
     Route: 042
     Dates: start: 20190911, end: 20190911
  6. NITROGLYCERIN [Concomitant]
     Active Substance: NITROGLYCERIN
     Indication: Cardiac failure
     Dosage: 80 MG
     Route: 042
     Dates: start: 20190911, end: 20190911
  7. NITROGLYCERIN [Concomitant]
     Active Substance: NITROGLYCERIN
     Dosage: 10 MG
     Route: 042
     Dates: start: 20190928, end: 20191001
  8. NITROGLYCERIN [Concomitant]
     Active Substance: NITROGLYCERIN
     Dosage: 20 MG
     Route: 042
     Dates: start: 20191111, end: 20191129
  9. ACARBOSE [Concomitant]
     Active Substance: ACARBOSE
     Indication: Pre-existing disease
     Dosage: 50 MG
     Route: 048
     Dates: start: 20190722, end: 20191112
  10. BISOPROLOL FUMARATE [Concomitant]
     Active Substance: BISOPROLOL FUMARATE
     Indication: Cardiac failure
     Dosage: 1.25 MG
     Route: 048
     Dates: start: 20190123, end: 20191129
  11. DIGOXIN [Concomitant]
     Active Substance: DIGOXIN
     Indication: Cardiac failure
     Dosage: 0.125 MG
     Route: 048
     Dates: start: 20190123, end: 20190915
  12. SPIRONOLACTONE [Concomitant]
     Active Substance: SPIRONOLACTONE
     Indication: Cardiac failure
     Dosage: 20 MG
     Route: 048
     Dates: start: 20190123, end: 20191129
  13. CREATINE [Concomitant]
     Active Substance: CREATINE
     Indication: Cardiac failure
     Dosage: 1 G
     Route: 042
     Dates: start: 20190910, end: 20191010
  14. FUROSEMIDE [Concomitant]
     Active Substance: FUROSEMIDE
     Indication: Cardiac failure
     Dosage: 20 MG
     Route: 048
     Dates: start: 20190910, end: 20190915
  15. RECOMBINANT HUMAN BRAIN NATRIURETIC PEPTIDE [Concomitant]
     Indication: Cardiac failure
     Dosage: 1 DF(1 BOTTLE)
     Route: 065
     Dates: start: 20190911, end: 20190914
  16. RISPERIDONE [Concomitant]
     Active Substance: RISPERIDONE
     Indication: Anxiety
     Dosage: 1 MG
     Route: 048
     Dates: start: 20190722, end: 20191129
  17. GLIMEPIRIDE [Concomitant]
     Active Substance: GLIMEPIRIDE
     Indication: Product used for unknown indication
     Dosage: 2 MG
     Route: 048
     Dates: start: 20191114, end: 20191129
  18. CEFOPERAZONE\TAZOBACTAM SODIUM [Concomitant]
     Active Substance: CEFOPERAZONE\TAZOBACTAM SODIUM
     Indication: Product used for unknown indication
     Dosage: 2 G
     Route: 042
     Dates: start: 20190915, end: 20190927
  19. POTASSIUM ASPARTATE [Concomitant]
     Active Substance: POTASSIUM ASPARTATE
     Indication: Electrolyte substitution therapy
     Dosage: 10 ML
     Route: 042
     Dates: start: 20190926, end: 20190930
  20. POTASSIUM CHLORIDE [Concomitant]
     Active Substance: POTASSIUM CHLORIDE
     Indication: Electrolyte substitution therapy
     Dosage: 0.5 G (SUSTAINED RELEASE TABLETS)
     Route: 048
     Dates: start: 20190915, end: 20190917
  21. POTASSIUM CHLORIDE [Concomitant]
     Active Substance: POTASSIUM CHLORIDE
     Dosage: 1 G
     Route: 048
     Dates: start: 20190930, end: 20190930
  22. POTASSIUM CHLORIDE [Concomitant]
     Active Substance: POTASSIUM CHLORIDE
     Dosage: 1 G
     Route: 048
     Dates: start: 20191002, end: 20191002
  23. LEVAMLODIPINE BESYLATE [Concomitant]
     Active Substance: LEVAMLODIPINE BESYLATE
     Indication: Product used for unknown indication
     Dosage: 5 MG
     Route: 048
     Dates: start: 20191002, end: 20191002
  24. LEVAMLODIPINE BESYLATE [Concomitant]
     Active Substance: LEVAMLODIPINE BESYLATE
     Dosage: 5 MG
     Route: 048
     Dates: start: 20191020
  25. CALAMINE + MENTHOL [Concomitant]
     Indication: Rash
     Dosage: 10 ML
     Route: 061
     Dates: start: 20190928, end: 20191010
  26. CALAMINE + MENTHOL [Concomitant]
     Indication: Pruritus
     Dosage: 15 ML
     Route: 061
     Dates: start: 20191030, end: 20191129
  27. MUPIROCIN [Concomitant]
     Active Substance: MUPIROCIN
     Indication: Prophylaxis
     Dosage: 5 G
     Route: 061
     Dates: start: 20191021, end: 20191129
  28. DESLANOSIDE [Concomitant]
     Active Substance: DESLANOSIDE
     Indication: Cardiac failure
     Dosage: 0.2 MG
     Route: 042
     Dates: start: 20190911, end: 20190911

REACTIONS (11)
  - Atrial fibrillation [Recovered/Resolved]
  - Hypokalaemia [Recovered/Resolved]
  - Folliculitis [Recovered/Resolved]
  - Hypertension [Not Recovered/Not Resolved]
  - Decubitus ulcer [Not Recovered/Not Resolved]
  - Urinary tract infection [Not Recovered/Not Resolved]
  - Malnutrition [Not Recovered/Not Resolved]
  - Marasmus [Not Recovered/Not Resolved]
  - Hypoproteinaemia [Not Recovered/Not Resolved]
  - Oedema peripheral [Recovered/Resolved]
  - Weight decreased [Recovered/Resolved]

NARRATIVE: CASE EVENT DATE: 20190902
